FAERS Safety Report 14798757 (Version 1)
Quarter: 2018Q2

REPORT INFORMATION
  Report Type: Spontaneous
  Country: US (occurrence: US)
  Receive Date: 20180416
  Receipt Date: 20180416
  Transmission Date: 20180711
  Serious: No
  Sender: FDA-Public Use
  Company Number: None

PATIENT
  Age: 65 Year
  Sex: Female

DRUGS (16)
  1. LEVOTHYROXINE. [Concomitant]
     Active Substance: LEVOTHYROXINE
  2. KSLRING [Concomitant]
  3. LIDEN TOP CREAM [Concomitant]
  4. AMPYRA [Suspect]
     Active Substance: DALFAMPRIDINE
     Indication: MULTIPLE SCLEROSIS
     Route: 048
     Dates: start: 201711
  5. HCTZ [Concomitant]
     Active Substance: HYDROCHLOROTHIAZIDE
  6. FLONASE [Concomitant]
     Active Substance: FLUTICASONE PROPIONATE
  7. ATROPINE OPHT DROP [Concomitant]
  8. TAZODONE [Concomitant]
  9. ATENOLOL. [Concomitant]
     Active Substance: ATENOLOL
  10. PRED FORTE OPHT DROP [Concomitant]
  11. COQ 10 [Concomitant]
     Active Substance: UBIDECARENONE
  12. LISINOPRIL. [Concomitant]
     Active Substance: LISINOPRIL
  13. BIOTIN [Concomitant]
     Active Substance: BIOTIN
  14. FAMOTIDINE. [Concomitant]
     Active Substance: FAMOTIDINE
  15. VENTOLIN HFA [Concomitant]
     Active Substance: ALBUTEROL SULFATE
  16. VIT [Concomitant]

REACTIONS (2)
  - Musculoskeletal pain [None]
  - Urinary tract infection [None]

NARRATIVE: CASE EVENT DATE: 20180411
